FAERS Safety Report 5658105-3 (Version None)
Quarter: 2008Q1

REPORT INFORMATION
  Report Type: 
  Country: None (occurrence: None)
  Receive Date: 20080310
  Receipt Date: 20070208
  Transmission Date: 20080703
  Serious: No
  Sender: FDA-Public Use
  Company Number: US-BAYER-200614933BCC

PATIENT
  Sex: Female
  Weight: 68 kg

DRUGS (6)
  1. ALEVE [Suspect]
     Indication: ARTHRALGIA
     Route: 048
  2. DOXAZOSIN MESYLATE [Concomitant]
  3. SIMVASTATIN [Concomitant]
  4. FELODIPINE [Concomitant]
  5. DIOVAN [Concomitant]
  6. FEXOFENADINE [Concomitant]

REACTIONS (1)
  - ARTHRALGIA [None]
